FAERS Safety Report 6733105-0 (Version None)
Quarter: 2010Q2

REPORT INFORMATION
  Report Type: 
  Country: None (occurrence: None)
  Receive Date: 20100518
  Receipt Date: 20100503
  Transmission Date: 20101027
  Serious: Yes (Death, Hospitalization)
  Sender: FDA-Public Use
  Company Number: 2009AC000226

PATIENT
  Age: 66 Year
  Sex: Male

DRUGS (27)
  1. DIGOXIN [Suspect]
     Dosage: PO
     Route: 048
     Dates: start: 20040520
  2. DIGOXIN [Suspect]
     Dosage: .125 MG;QD;PO
     Route: 048
     Dates: start: 20040517, end: 20050525
  3. DIGOXIN [Suspect]
     Dosage: PO
     Route: 048
     Dates: start: 20050601, end: 20071001
  4. ALACARE [Concomitant]
  5. LORTAB [Concomitant]
  6. PRILOSEC [Concomitant]
  7. TYLENOL [Concomitant]
  8. PEPCID [Concomitant]
  9. HYDROCHLOROTHIAZIDE [Concomitant]
  10. TOPROL-XL [Concomitant]
  11. DIOVAN [Concomitant]
  12. IMDUR [Concomitant]
  13. HYDRALAZINE HCL [Concomitant]
  14. PLAVIX [Concomitant]
  15. LEVAQUIN [Concomitant]
  16. METHOCARBAMOL [Concomitant]
  17. DARVOCET [Concomitant]
  18. MACROBID [Concomitant]
  19. TYLENOL [Concomitant]
  20. DIFLUCAN [Concomitant]
  21. PROTONIX [Concomitant]
  22. ZEGERID [Concomitant]
  23. MIRALAX [Concomitant]
  24. ZOSYN [Concomitant]
  25. BACTRIM DS [Concomitant]
  26. SPIRONOLACTONE [Concomitant]
  27. POTASSIUM [Concomitant]

REACTIONS (35)
  - AORTIC ARTERIOSCLEROSIS [None]
  - AORTIC VALVE INCOMPETENCE [None]
  - BACK PAIN [None]
  - BLOOD PRESSURE FLUCTUATION [None]
  - BRADYCARDIA [None]
  - CANDIDURIA [None]
  - CARDIAC FAILURE CHRONIC [None]
  - CATHETER SITE INFECTION [None]
  - CEREBROVASCULAR ACCIDENT [None]
  - CHEST DISCOMFORT [None]
  - COLITIS [None]
  - COLONIC POLYP [None]
  - CYSTITIS HAEMORRHAGIC [None]
  - DECREASED APPETITE [None]
  - DYSPEPSIA [None]
  - DYSPNOEA [None]
  - ECONOMIC PROBLEM [None]
  - ERYTHEMA [None]
  - FUNGAL INFECTION [None]
  - GAIT DISTURBANCE [None]
  - GASTROOESOPHAGEAL REFLUX DISEASE [None]
  - HYPERHIDROSIS [None]
  - HYPERTENSION [None]
  - HYPOKALAEMIA [None]
  - HYPOTENSION [None]
  - MEMORY IMPAIRMENT [None]
  - MENTAL STATUS CHANGES [None]
  - METABOLIC ACIDOSIS [None]
  - MULTIPLE INJURIES [None]
  - NAUSEA [None]
  - PYELONEPHRITIS ACUTE [None]
  - RENAL FAILURE ACUTE [None]
  - SKIN ULCER [None]
  - UROSEPSIS [None]
  - VOMITING [None]
